FAERS Safety Report 20297847 (Version 1)
Quarter: 2022Q1

REPORT INFORMATION
  Report Type: Spontaneous
  Country: US (occurrence: US)
  Receive Date: 20220105
  Receipt Date: 20220105
  Transmission Date: 20220424
  Serious: Yes (Other)
  Sender: FDA-Public Use
  Company Number: US-SA-SAC20220101000124

PATIENT

DRUGS (2)
  1. ZANTAC [Suspect]
     Active Substance: RANITIDINE HYDROCHLORIDE
     Dosage: UNK
  2. RANITIDINE [Suspect]
     Active Substance: RANITIDINE
     Dosage: UNK

REACTIONS (2)
  - Colon cancer [Unknown]
  - Colorectal cancer [Unknown]
